FAERS Safety Report 10576661 (Version 1)
Quarter: 2014Q4

REPORT INFORMATION
  Report Type: Spontaneous
  Country: US (occurrence: None)
  Receive Date: 20141110
  Receipt Date: 20141110
  Transmission Date: 20150529
  Serious: No
  Sender: FDA-Public Use
  Company Number: None

PATIENT
  Age: 67 Year
  Sex: Female
  Weight: 50.8 kg

DRUGS (1)
  1. FOSAMAX [Suspect]
     Active Substance: ALENDRONATE SODIUM
     Indication: OSTEOPOROSIS
     Dosage: 1 PILL
     Route: 048
     Dates: start: 20131007, end: 20141021

REACTIONS (5)
  - Oesophageal oedema [None]
  - Paraesthesia oral [None]
  - Dysphagia [None]
  - Oropharyngeal pain [None]
  - Pain in jaw [None]

NARRATIVE: CASE EVENT DATE: 20141107
